FAERS Safety Report 25624380 (Version 1)
Quarter: 2025Q3

REPORT INFORMATION
  Report Type: Spontaneous
  Country: EU (occurrence: EU)
  Receive Date: 20250730
  Receipt Date: 20250730
  Transmission Date: 20251021
  Serious: Yes (Hospitalization)
  Sender: NOVO NORDISK
  Company Number: None

PATIENT
  Age: 78 Year
  Sex: Male

DRUGS (7)
  1. OZEMPIC [Suspect]
     Active Substance: SEMAGLUTIDE
     Indication: Type 2 diabetes mellitus
     Dosage: 1 MG, QW
     Route: 058
     Dates: start: 202503, end: 20250608
  2. NEVANAC [Concomitant]
     Active Substance: NEPAFENAC
     Indication: Postoperative care
     Dates: start: 20250513, end: 20250610
  3. PRED FORTE [Concomitant]
     Active Substance: PREDNISOLONE ACETATE
     Indication: Postoperative care
     Dates: start: 20250513, end: 20250610
  4. AZOPT [Concomitant]
     Active Substance: BRINZOLAMIDE
     Indication: Ocular hypertension
     Dates: start: 202410
  5. FUROSEMIDE [Concomitant]
     Active Substance: FUROSEMIDE
     Indication: Oedema peripheral
     Route: 048
     Dates: start: 202307, end: 20250611
  6. TOUJEO [Concomitant]
     Active Substance: INSULIN GLARGINE
     Indication: Type 2 diabetes mellitus
     Dosage: 42 IU, QD (42UNITS IN THE MORNINGS)
     Route: 058
     Dates: start: 202312
  7. DESLORATADINE [Concomitant]
     Active Substance: DESLORATADINE
     Indication: Seasonal allergy
     Route: 048
     Dates: start: 20250417

REACTIONS (7)
  - Pyrexia [Not Recovered/Not Resolved]
  - Jaundice [Not Recovered/Not Resolved]
  - Chromaturia [Not Recovered/Not Resolved]
  - Nasopharyngitis [Not Recovered/Not Resolved]
  - Cough [Not Recovered/Not Resolved]
  - C-reactive protein increased [Not Recovered/Not Resolved]
  - Autoimmune haemolytic anaemia [Not Recovered/Not Resolved]

NARRATIVE: CASE EVENT DATE: 20250607
